FAERS Safety Report 10421994 (Version 2)
Quarter: 2014Q3

REPORT INFORMATION
  Report Type: Spontaneous
  Country: JP (occurrence: JP)
  Receive Date: 20140901
  Receipt Date: 20140909
  Transmission Date: 20150326
  Serious: Yes (Other)
  Sender: FDA-Public Use
  Company Number: JP-RANBAXY-2014RR-84793

PATIENT
  Sex: Female

DRUGS (5)
  1. DIAZEPAM. [Concomitant]
     Active Substance: DIAZEPAM
     Indication: BENIGN FAMILIAL NEONATAL CONVULSIONS
     Dosage: 0.5 MG/KG
     Route: 065
  2. MIDAZOLAM [Suspect]
     Active Substance: MIDAZOLAM\MIDAZOLAM HYDROCHLORIDE
     Indication: BENIGN FAMILIAL NEONATAL CONVULSIONS
     Dosage: 0.3 MG/KG/DAY
     Route: 042
  3. PHENOBARBITAL. [Suspect]
     Active Substance: PHENOBARBITAL
     Indication: BENIGN FAMILIAL NEONATAL CONVULSIONS
     Dosage: 10 MG/KG
     Route: 065
  4. PHENOBARBITAL. [Suspect]
     Active Substance: PHENOBARBITAL
     Indication: BENIGN FAMILIAL NEONATAL CONVULSIONS
     Dosage: 30 MG/KG
     Route: 065
  5. MIDAZOLAM [Suspect]
     Active Substance: MIDAZOLAM\MIDAZOLAM HYDROCHLORIDE
     Indication: BENIGN FAMILIAL NEONATAL CONVULSIONS
     Dosage: UNK
     Route: 042

REACTIONS (2)
  - Epilepsy [Recovered/Resolved]
  - Encephalopathy [Recovered/Resolved]
